FAERS Safety Report 17289447 (Version 2)
Quarter: 2020Q2

REPORT INFORMATION
  Report Type: Report from Study
  Country: US (occurrence: US)
  Receive Date: 20200120
  Receipt Date: 20200416
  Transmission Date: 20200713
  Serious: Yes (Death)
  Sender: FDA-Public Use
  Company Number: US-ASTRAZENECA-2020SE08103

PATIENT
  Sex: Female

DRUGS (1)
  1. SYNAGIS [Suspect]
     Active Substance: PALIVIZUMAB
     Indication: PREMATURE BABY
     Route: 030

REACTIONS (1)
  - Death [Fatal]
